FAERS Safety Report 18770955 (Version 2)
Quarter: 2022Q2

REPORT INFORMATION
  Report Type: Other
  Country: US (occurrence: None)
  Receive Date: 20210122
  Receipt Date: 20220617
  Transmission Date: 20220720
  Serious: Yes (Other)
  Sender: FDA-Public Use
  Company Number: US-ROCHE-2752631

PATIENT
  Age: 39 Year
  Sex: Female

DRUGS (20)
  1. OCREVUS [Suspect]
     Active Substance: OCRELIZUMAB
     Indication: Multiple sclerosis
     Dosage: DATE OF TREATMENT: 1/FEB/2018, 15/FEB/2018, 10/SEP/2018, 15/DEC/2020
     Route: 042
  2. KLONOPIN [Suspect]
     Active Substance: CLONAZEPAM
     Indication: Affective disorder
     Route: 065
  3. ALUMINUM CHLORIDE [Concomitant]
     Active Substance: ALUMINUM CHLORIDE
     Dosage: APPLY TO AFFECTED AREA ON ARMPIT AT BEDTIME
     Route: 061
  4. BACLOFEN [Concomitant]
     Active Substance: BACLOFEN
     Dosage: TAKE 1 TAB 3 TIMES A DAY SCHEDULED AND AN ADDITIONAL HALF TAB AS NEEDED
     Route: 048
  5. QVAR [Concomitant]
     Active Substance: BECLOMETHASONE DIPROPIONATE
     Dosage: 80 MCG/ACT INHALATION AERO SOLUTION INHALE 2 PUFFS BY MOUTH
  6. BUPROPION [Concomitant]
     Active Substance: BUPROPION
     Route: 048
  7. BUSPIRONE [Concomitant]
     Active Substance: BUSPIRONE HYDROCHLORIDE
     Route: 048
  8. DULOXETINE [Concomitant]
     Active Substance: DULOXETINE
     Route: 048
  9. GABAPENTIN [Concomitant]
     Active Substance: GABAPENTIN
     Dosage: AT BEDTIME
     Route: 048
  10. KETOROLAC [Concomitant]
     Active Substance: KETOROLAC TROMETHAMINE
     Dosage: 30 MG/ML
     Route: 030
  11. METFORMIN [Concomitant]
     Active Substance: METFORMIN HYDROCHLORIDE
     Route: 048
  12. MINOCYCLINE [Concomitant]
     Active Substance: MINOCYCLINE HYDROCHLORIDE
     Route: 048
  13. MODAFINIL [Concomitant]
     Active Substance: MODAFINIL
     Dosage: TAKE 1-2 TAB DAILY
     Route: 048
  14. MONTELUKAST [Concomitant]
     Active Substance: MONTELUKAST SODIUM
     Dosage: EVERY EVENING
     Route: 048
  15. NORTRIPTYLINE [Concomitant]
     Active Substance: NORTRIPTYLINE
     Dosage: AT BEDTIME
     Route: 048
  16. OXCARBAZEPINE [Concomitant]
     Active Substance: OXCARBAZEPINE
     Dosage: TAKE 1 TAB IN THE MORNING AND 1.5 TABS IN THE EVENING
     Route: 048
  17. PROAIR HFA [Concomitant]
     Active Substance: ALBUTEROL SULFATE
     Dosage: 108 MCG/ACT INHALATION AERO SOLUTION  INHALE 2 PUFFS BY MOUTH EVERY 4 HOURS
  18. SPIRONOLACTONE [Concomitant]
     Active Substance: SPIRONOLACTONE
     Dosage: 3 TABS BY MOUTH
     Route: 048
  19. TRAZODONE [Concomitant]
     Active Substance: TRAZODONE HYDROCHLORIDE
     Route: 048
  20. VALACYCLOVIR [Concomitant]
     Active Substance: VALACYCLOVIR HYDROCHLORIDE
     Route: 048

REACTIONS (14)
  - Syncope [Unknown]
  - Urinary tract infection [Unknown]
  - Arteriosclerosis [Unknown]
  - Dyslipidaemia [Unknown]
  - Arthralgia [Unknown]
  - Hypotension [Unknown]
  - Muscle spasticity [Unknown]
  - Onychomycosis [Unknown]
  - Dizziness [Unknown]
  - Immunosuppression [Unknown]
  - Hyperhidrosis [Unknown]
  - Weight decreased [Unknown]
  - Rhinitis allergic [Unknown]
  - Chest pain [Unknown]

NARRATIVE: CASE EVENT DATE: 20180418
